FAERS Safety Report 9632524 (Version 2)
Quarter: 2013Q4

REPORT INFORMATION
  Report Type: Spontaneous
  Country: US (occurrence: US)
  Receive Date: 20131018
  Receipt Date: 20131018
  Transmission Date: 20140711
  Serious: Yes (Other)
  Sender: FDA-Public Use
  Company Number: US-BRISTOL-MYERS SQUIBB COMPANY-19030246

PATIENT
  Sex: Male

DRUGS (1)
  1. GLUCOPHAGE [Suspect]
     Dosage: JUN2002-2012:10YEAR?GLUCOPHAGE XR?INT + RESTARTED
     Route: 048
     Dates: start: 200206, end: 2012

REACTIONS (3)
  - Renal failure chronic [Unknown]
  - Lactic acidosis [Unknown]
  - Blood creatinine increased [Unknown]
